FAERS Safety Report 4995775-7 (Version None)
Quarter: 2006Q2

REPORT INFORMATION
  Report Type: 
  Country: None (occurrence: None)
  Receive Date: 20060508
  Receipt Date: 20060503
  Transmission Date: 20061013
  Serious: Yes (Other)
  Sender: FDA-Public Use
  Company Number: IT-BOEHRINGER INGELHEIM PHARMACEUTICALS, INC.-2006-DE-02227GD

PATIENT
  Sex: Female

DRUGS (6)
  1. NEVIRAPINE [Suspect]
     Indication: PROPHYLAXIS AGAINST HIV INFECTION
     Route: 015
  2. NEVIRAPINE [Suspect]
     Indication: HIV INFECTION
  3. ZIDOVUDINE [Suspect]
     Indication: PROPHYLAXIS AGAINST HIV INFECTION
     Route: 015
  4. ZIDOVUDINE [Suspect]
     Indication: HIV INFECTION
     Route: 048
  5. ZIDOVUDINE [Suspect]
  6. LAMIVUDINE [Suspect]
     Indication: HIV INFECTION

REACTIONS (3)
  - BLOOD HIV RNA INCREASED [None]
  - DRUG INEFFECTIVE [None]
  - HIV TEST POSITIVE [None]
